FAERS Safety Report 8163426-9 (Version None)
Quarter: 2012Q1

REPORT INFORMATION
  Report Type: 
  Country: None (occurrence: None)
  Receive Date: 20120224
  Receipt Date: 20120220
  Transmission Date: 20120608
  Serious: Yes (Death, Other)
  Sender: FDA-Public Use
  Company Number: US-BAYER-2011-052686

PATIENT
  Sex: Male
  Weight: 71 kg

DRUGS (29)
  1. GADOLINIUM IN UNSPECIFIED DRUG [Suspect]
     Indication: NUCLEAR MAGNETIC RESONANCE IMAGING ABDOMINAL
     Dosage: UNK
     Dates: start: 19971106, end: 19971106
  2. LISINOPRIL [Concomitant]
  3. LASIX [Concomitant]
  4. PREDNISONE [Concomitant]
  5. COUMADIN [Concomitant]
  6. RENAGEL [Concomitant]
  7. MIDODRINE HYDROCHLORIDE [Concomitant]
     Dosage: 15 MG, 3 TIMES A WEEK
  8. WARFARIN SODIUM [Concomitant]
     Dosage: 5 MG, QD
  9. VASOTEC [Concomitant]
  10. SENSIPAR [Concomitant]
  11. MAG-TAB [Concomitant]
     Dosage: 84 MG, BID
  12. GADOLINIUM IN UNSPECIFIED DRUG [Suspect]
     Dosage: UNK
     Dates: start: 20000630, end: 20000630
  13. INDERAL [Concomitant]
  14. GADOLINIUM IN UNSPECIFIED DRUG [Suspect]
     Indication: NUCLEAR MAGNETIC RESONANCE IMAGING
     Dosage: UNK
     Dates: start: 19951002
  15. GADOLINIUM IN UNSPECIFIED DRUG [Suspect]
     Indication: NUCLEAR MAGNETIC RESONANCE IMAGING BRAIN
     Dosage: UNK
     Dates: start: 19980115
  16. GADOLINIUM IN UNSPECIFIED DRUG [Suspect]
     Indication: ANGIOGRAM
     Dosage: UNK
     Dates: start: 19991112, end: 19991112
  17. DIGOXIN [Concomitant]
  18. TOPROL-XL [Concomitant]
  19. IMMUNOSUPPRESSIVE AGENTS [Concomitant]
  20. PROCARDIA [Concomitant]
  21. IRON [Concomitant]
  22. LEXAPRO [Concomitant]
  23. NEPHROCAPS [Concomitant]
     Dosage: UNK UNK, QD
  24. BUSPAR [Concomitant]
  25. MAGNEVIST [Suspect]
     Indication: NUCLEAR MAGNETIC RESONANCE IMAGING ABDOMINAL
     Dosage: UNK
     Dates: start: 20010731, end: 20010731
  26. MINOXIDIL [Concomitant]
  27. NORVASC [Concomitant]
  28. FOSRENOL [Concomitant]
     Indication: RENAL FAILURE CHRONIC
     Dosage: 1000 MG, TID
  29. EPOGEN [Concomitant]

REACTIONS (11)
  - MUSCLE RIGIDITY [None]
  - PAIN [None]
  - EMOTIONAL DISTRESS [None]
  - NEPHROGENIC SYSTEMIC FIBROSIS [None]
  - ANHEDONIA [None]
  - IMPAIRED HEALING [None]
  - DISABILITY [None]
  - SKIN HYPERTROPHY [None]
  - SKIN INDURATION [None]
  - INJURY [None]
  - ANXIETY [None]
